FAERS Safety Report 8461350-5 (Version None)
Quarter: 2012Q2

REPORT INFORMATION
  Report Type: 
  Country: None (occurrence: None)
  Receive Date: 20120620
  Receipt Date: 20120620
  Transmission Date: 20120825
  Serious: Yes (Hospitalization, Other)
  Sender: FDA-Public Use
  Company Number: None

PATIENT
  Age: 70 Year
  Sex: Male
  Weight: 79.3795 kg

DRUGS (1)
  1. CEPHALEXIN [Suspect]
     Indication: PROPHYLAXIS
     Dosage: 500 MG TID PO
     Route: 048
     Dates: start: 20120215, end: 20120221

REACTIONS (3)
  - DIARRHOEA [None]
  - CARDIAC FAILURE CONGESTIVE [None]
  - MALAISE [None]
